FAERS Safety Report 5121558-3 (Version None)
Quarter: 2006Q4

REPORT INFORMATION
  Report Type: 
  Country: None (occurrence: None)
  Receive Date: 20061006
  Receipt Date: 20060823
  Transmission Date: 20070319
  Serious: Yes (Hospitalization)
  Sender: FDA-Public Use
  Company Number: US-AMGEN-US191008

PATIENT
  Sex: Female
  Weight: 71.3 kg

DRUGS (8)
  1. ENBREL [Suspect]
     Indication: RHEUMATOID ARTHRITIS
     Route: 058
     Dates: start: 20050207
  2. NORVASC [Concomitant]
  3. LEVOTHYROXIN [Concomitant]
  4. TYLENOL (CAPLET) [Concomitant]
  5. FOLIC ACID [Concomitant]
  6. METHOTREXATE [Concomitant]
     Route: 042
  7. FOSAMAX [Concomitant]
  8. LEUCOVORIN CALCIUM [Concomitant]

REACTIONS (7)
  - COLONIC POLYP [None]
  - CONTUSION [None]
  - DIVERTICULUM [None]
  - GROIN PAIN [None]
  - KNEE ARTHROPLASTY [None]
  - MUSCULOSKELETAL PAIN [None]
  - NODULE ON EXTREMITY [None]
